FAERS Safety Report 7709362-0 (Version None)
Quarter: 2011Q3

REPORT INFORMATION
  Report Type: 
  Country: None (occurrence: None)
  Receive Date: 20110819
  Receipt Date: 20110810
  Transmission Date: 20111222
  Serious: Yes (Other)
  Sender: FDA-Public Use
  Company Number: 2011SP031617

PATIENT
  Age: 69 Year
  Sex: Female

DRUGS (2)
  1. PEG-INTRON [Suspect]
     Indication: HEPATITIS VIRAL
     Dosage: 120 MCG;QW;
     Dates: start: 20070403, end: 20070917
  2. REBETOL [Suspect]
     Indication: HEPATITIS VIRAL
     Dosage: 200 MG;BID;
     Dates: start: 20070403, end: 20070917

REACTIONS (4)
  - WEIGHT INCREASED [None]
  - CONDITION AGGRAVATED [None]
  - DEMYELINATION [None]
  - HEPATIC STEATOSIS [None]
